FAERS Safety Report 4507567-3 (Version None)
Quarter: 2004Q4

REPORT INFORMATION
  Report Type: 
  Country: None (occurrence: None)
  Receive Date: 20041118
  Receipt Date: 20041109
  Transmission Date: 20050328
  Serious: Yes (Hospitalization)
  Sender: FDA-Public Use
  Company Number: 6011547

PATIENT
  Age: 82 Year
  Sex: Female

DRUGS (9)
  1. BISOPROLOL FUMARATE [Suspect]
     Indication: HYPERTONIA
     Dosage: 10 MG, ORAL
     Route: 048
     Dates: start: 20000101
  2. BISOPROLOL FUMARATE [Suspect]
     Indication: HYPERTONIA
     Dosage: 1 DOSAGE, ORAL
     Route: 048
  3. ENALAPRIL [Suspect]
     Indication: HYPERTONIA
     Dosage: 30 MG, ORAL
     Route: 048
     Dates: start: 20000101
  4. LANTUS 100 IE/ML (INSULIN GLARGINE) [Suspect]
     Indication: INSULIN-REQUIRING TYPE II DIABETES MELLITUS
     Dosage: SEE IMAGE, SUBCUTANEOUS
     Route: 058
     Dates: start: 20040601, end: 20040816
  5. LANTUS 100 IE/ML (INSULIN GLARGINE) [Suspect]
     Indication: INSULIN-REQUIRING TYPE II DIABETES MELLITUS
     Dosage: SEE IMAGE, SUBCUTANEOUS
     Route: 058
     Dates: start: 20040817
  6. STARLIX [Suspect]
     Dosage: SEE IMAGE, ORAL/1 YEARS
     Route: 048
     Dates: start: 20030101, end: 20040816
  7. STARLIX [Suspect]
     Dosage: SEE IMAGE, ORAL/1 YEARS
     Route: 048
     Dates: start: 20040817
  8. NITRENDIPIN BETA 20 (NITRENDIPINE) [Concomitant]
  9. TICLOPIDIN AZU (TICLOPIDINE) [Concomitant]

REACTIONS (6)
  - BLOOD GLUCOSE INCREASED [None]
  - CIRCULATORY COLLAPSE [None]
  - COMA [None]
  - FEELING ABNORMAL [None]
  - HYPOGLYCAEMIA [None]
  - PROTHROMBIN TIME SHORTENED [None]
